FAERS Safety Report 9844739 (Version 1)
Quarter: 2014Q1

REPORT INFORMATION
  Report Type: Spontaneous
  Country: US (occurrence: None)
  Receive Date: 20140122
  Receipt Date: 20140122
  Transmission Date: 20141002
  Serious: Yes (Death)
  Sender: FDA-Public Use
  Company Number: B0958513A

PATIENT
  Age: 19 Year
  Sex: Female

DRUGS (8)
  1. BUPROPION HYDROCHLORIDE [Suspect]
     Route: 048
  2. DIAZEPAM [Suspect]
     Route: 048
  3. CLONAZEPAM [Suspect]
     Route: 048
  4. OXYCODONE [Suspect]
  5. HYDROCODONE [Suspect]
  6. TEMAZEPAM [Suspect]
  7. PENTAZOCINE [Suspect]
  8. TRAZODONE [Suspect]

REACTIONS (5)
  - Drug abuse [None]
  - Exposure via inhalation [None]
  - Exposure via ingestion [None]
  - Cardio-respiratory arrest [None]
  - Overdose [None]
